FAERS Safety Report 8800785 (Version 1)
Quarter: 2012Q4

REPORT INFORMATION
  Report Type: 
  Country: US (occurrence: US)
  Receive Date: 20120921
  Receipt Date: 20120921
  Transmission Date: 20130627
  Serious: Yes (Other)
  Sender: FDA-Public Use
  Company Number: US-BRISTOL-MYERS SQUIBB COMPANY-16955676

PATIENT
  Sex: Male

DRUGS (4)
  1. REYATAZ [Suspect]
     Indication: ANTIRETROVIRAL THERAPY
  2. RITONAVIR [Suspect]
  3. TRUVADA [Suspect]
  4. TELAPREVIR [Suspect]

REACTIONS (3)
  - Hepatic cirrhosis [Unknown]
  - Hepatitis C [Unknown]
  - Blood bilirubin increased [Unknown]
